FAERS Safety Report 4416898-7 (Version None)
Quarter: 2004Q3

REPORT INFORMATION
  Report Type: 
  Country: None (occurrence: None)
  Receive Date: 20040806
  Receipt Date: 20040729
  Transmission Date: 20050211
  Serious: Yes (Other)
  Sender: FDA-Public Use
  Company Number: US-ROCHE-376361

PATIENT
  Sex: Female

DRUGS (2)
  1. CELLCEPT [Suspect]
     Indication: LUPUS NEPHRITIS
     Route: 065
  2. ENALAPRIL MALEATE [Concomitant]

REACTIONS (1)
  - ANGIONEUROTIC OEDEMA [None]
